FAERS Safety Report 8518795-4 (Version None)
Quarter: 2012Q3

REPORT INFORMATION
  Report Type: 
  Country: None (occurrence: None)
  Receive Date: 20120718
  Receipt Date: 20120712
  Transmission Date: 20120928
  Serious: Yes (Other)
  Sender: FDA-Public Use
  Company Number: PHHO2012GB010374

PATIENT
  Age: 62 Year
  Sex: Female

DRUGS (15)
  1. SILDENAFIL [Concomitant]
     Dosage: 100 MG TDS
     Dates: start: 20080101
  2. CALCICHEW D3 [Concomitant]
     Dosage: 1 DF, BID
  3. FUROSEMIDE [Concomitant]
     Dosage: 20 MG DAILY
  4. LANSOPRAZOLE [Concomitant]
     Dosage: 30 MG DAILY
  5. SIMVASTATIN [Concomitant]
     Dosage: 20 MG, QD
  6. PENICILLIN V [Concomitant]
     Dosage: 250 MG, BID
  7. SPIRONOLACTONE [Concomitant]
     Dosage: 25 MG DAILY
  8. IMATINIB MESYLATE [Suspect]
     Indication: PULMONARY ARTERIAL HYPERTENSION
     Dosage: UNK
  9. PREDNISOLONE [Concomitant]
     Dosage: 7.5 MG DAILY
  10. LACTULOSE [Concomitant]
     Dosage: 10 ML, BID
  11. WARFARIN SODIUM [Concomitant]
  12. FERROUS SULFATE TAB [Concomitant]
     Dosage: 200 MG, BID
  13. AMBRISENTAN [Concomitant]
     Dosage: 10 MG DAILY
     Dates: start: 20101201
  14. MYCOPHENOLATE MOFETIL [Concomitant]
     Dosage: 500 MG, BID
  15. DIGOXIN [Concomitant]
     Dosage: 12 UG, UNK

REACTIONS (2)
  - GASTROINTESTINAL DISORDER [None]
  - LOWER RESPIRATORY TRACT INFECTION [None]
